FAERS Safety Report 10343134 (Version 1)
Quarter: 2014Q3

REPORT INFORMATION
  Report Type: Spontaneous
  Country: CA (occurrence: CA)
  Receive Date: 20140725
  Receipt Date: 20140725
  Transmission Date: 20150326
  Serious: Yes (Death)
  Sender: FDA-Public Use
  Company Number: PHHY2014CA091567

PATIENT
  Age: 41 Year
  Sex: Male
  Weight: 81.63 kg

DRUGS (3)
  1. ANTIINFECTIVES [Concomitant]
     Active Substance: UNSPECIFIED INGREDIENT
     Dosage: UNK
  2. CLOZARIL [Suspect]
     Active Substance: CLOZAPINE
     Dosage: 400 MG, 1 EVERY 1 DAY
     Route: 048
  3. CLOZARIL [Suspect]
     Active Substance: CLOZAPINE
     Dosage: 100 MG, 1 EVERY 1 DAY
     Route: 048

REACTIONS (1)
  - Completed suicide [Fatal]
